FAERS Safety Report 25661607 (Version 1)
Quarter: 2025Q3

REPORT INFORMATION
  Report Type: Spontaneous
  Country: EU (occurrence: EU)
  Receive Date: 20250808
  Receipt Date: 20250808
  Transmission Date: 20251020
  Serious: Yes (Life-Threatening, Hospitalization, Other)
  Sender: PURDUE
  Company Number: EU-CHIESI-2025CHF04869

PATIENT
  Sex: Female

DRUGS (9)
  1. MORPHINE SULFATE [Suspect]
     Active Substance: MORPHINE SULFATE
     Indication: Pulmonary oedema
     Route: 064
  2. MORPHINE SULFATE [Suspect]
     Active Substance: MORPHINE SULFATE
     Indication: Pulmonary oedema
     Route: 064
  3. FENTANYL [Suspect]
     Active Substance: FENTANYL
     Indication: Acute respiratory failure
     Route: 064
  4. TORECAN [Suspect]
     Active Substance: THIETHYLPERAZINE MALATE
     Indication: Pulmonary oedema
     Route: 064
  5. FUROSEMIDE [Suspect]
     Active Substance: FUROSEMIDE
     Indication: Pulmonary oedema
     Route: 064
  6. OXYGEN [Suspect]
     Active Substance: OXYGEN
     Indication: Pulmonary oedema
     Route: 064
  7. THIOPENTAL [Suspect]
     Active Substance: THIOPENTAL
     Indication: Acute respiratory failure
     Route: 064
  8. ROCURONIUM BROMIDE [Suspect]
     Active Substance: ROCURONIUM BROMIDE
     Indication: Acute respiratory failure
     Route: 064
  9. EPINEPHRINE [Suspect]
     Active Substance: EPINEPHRINE
     Indication: Cardiac arrest
     Route: 065

REACTIONS (4)
  - Bradycardia foetal [Recovering/Resolving]
  - Bradycardia neonatal [Recovering/Resolving]
  - Neonatal respiratory arrest [Recovering/Resolving]
  - Foetal exposure during pregnancy [Recovering/Resolving]
